FAERS Safety Report 20540677 (Version 1)
Quarter: 2022Q1

REPORT INFORMATION
  Report Type: Spontaneous
  Country: NL (occurrence: NL)
  Receive Date: 20220302
  Receipt Date: 20220302
  Transmission Date: 20220423
  Serious: Yes (Death, Life-Threatening)
  Sender: FDA-Public Use
  Company Number: None

PATIENT
  Age: 79 Year
  Sex: Male
  Weight: 72 kg

DRUGS (9)
  1. DARZALEX [Suspect]
     Active Substance: DARATUMUMAB
     Indication: Plasma cell myeloma
     Dosage: VOLWASSENEN 1800 MG 1X PER WEEK IN WEEK 1-8,
     Route: 065
     Dates: start: 20211026
  2. OXYCODONE [Concomitant]
     Active Substance: OXYCODONE
     Dosage: 2 X PER DAG 1 STUK
  3. CLEMASTINE [Concomitant]
     Active Substance: CLEMASTINE
     Dosage: 1 X PER DAG 1 STUK
  4. TEMAZEPAM [Concomitant]
     Active Substance: TEMAZEPAM
     Dosage: ZO NODIG 1X PER DAG 1 STUK VOOR DE NACHT
  5. PANTOPRAZOLE [Concomitant]
     Active Substance: PANTOPRAZOLE
     Dosage: 1X PER DAG 1 STUK
  6. VALACYCLOVIR HYDROCHLORIDE [Concomitant]
     Active Substance: VALACYCLOVIR HYDROCHLORIDE
     Dosage: 2 X PER DAG 1 STUK
  7. DEXAMETHASONE [Concomitant]
     Active Substance: DEXAMETHASONE
     Dosage: 1 X PER DAG 1 STUK
  8. TRAMADOL HYDROCHLORIDE [Concomitant]
     Active Substance: TRAMADOL HYDROCHLORIDE
     Dosage: 1 X PER DAG STUK
  9. ACETYLCYSTEINE [Concomitant]
     Active Substance: ACETYLCYSTEINE
     Dosage: 3X PER DAG 1 STUK

REACTIONS (1)
  - Dyspnoea [Fatal]

NARRATIVE: CASE EVENT DATE: 20211026
